FAERS Safety Report 7401842-0 (Version None)
Quarter: 2011Q2

REPORT INFORMATION
  Report Type: 
  Country: None (occurrence: None)
  Receive Date: 20110408
  Receipt Date: 20091122
  Transmission Date: 20111010
  Serious: Yes (Other)
  Sender: FDA-Public Use
  Company Number: US-BAYER-200940157NA

PATIENT
  Sex: Male
  Weight: 95 kg

DRUGS (6)
  1. ACCUPRIL [Concomitant]
     Route: 048
  2. ACETYLSALICYLIC ACID SRT [Concomitant]
     Route: 048
  3. TRASYLOL [Suspect]
     Indication: CORONARY ARTERY BYPASS
     Dosage: UNK
     Route: 042
     Dates: start: 20040109
  4. ALEVE LIQUID GEL CAPS [Concomitant]
     Dosage: UNK UNK, PRN
     Route: 048
  5. ZOCOR [Concomitant]
     Route: 048
  6. IBUPROFEN (ADVIL) [Concomitant]
     Dosage: UNK UNK, PRN
     Route: 048

REACTIONS (11)
  - RENAL FAILURE [None]
  - RENAL IMPAIRMENT [None]
  - FEAR [None]
  - UNEVALUABLE EVENT [None]
  - RENAL INJURY [None]
  - EMOTIONAL DISTRESS [None]
  - ANXIETY [None]
  - PAIN [None]
  - STRESS [None]
  - INJURY [None]
  - ANHEDONIA [None]
